FAERS Safety Report 15956680 (Version 1)
Quarter: 2019Q1

REPORT INFORMATION
  Report Type: Spontaneous
  Country: FR (occurrence: FR)
  Receive Date: 20190213
  Receipt Date: 20190213
  Transmission Date: 20190417
  Serious: Yes (Hospitalization, Other)
  Sender: FDA-Public Use
  Company Number: FR-MYLANLABS-2019M1011990

PATIENT
  Age: 42 Year
  Sex: Male
  Weight: 59 kg

DRUGS (2)
  1. QUETIAPINE. [Suspect]
     Active Substance: QUETIAPINE
     Indication: PRODUCT USED FOR UNKNOWN INDICATION
     Route: 048
     Dates: start: 20180630, end: 20180630
  2. ALPRAZOLAM. [Suspect]
     Active Substance: ALPRAZOLAM
     Indication: PRODUCT USED FOR UNKNOWN INDICATION
     Dosage: 4 PLAQUETTES DE 0.5MG/CP
     Route: 048
     Dates: start: 20180630, end: 20180630

REACTIONS (5)
  - Altered state of consciousness [Recovered/Resolved]
  - Tachycardia [Recovered/Resolved]
  - Suicide attempt [Unknown]
  - Bundle branch block right [Recovered/Resolved]
  - Hypotension [Recovered/Resolved]

NARRATIVE: CASE EVENT DATE: 20180630
